FAERS Safety Report 12637356 (Version 1)
Quarter: 2016Q3

REPORT INFORMATION
  Report Type: Spontaneous
  Country: US (occurrence: US)
  Receive Date: 20160809
  Receipt Date: 20160809
  Transmission Date: 20161109
  Serious: Yes (Other)
  Sender: FDA-Public Use
  Company Number: US-BEH-2015057503

PATIENT
  Sex: Male
  Weight: 95 kg

DRUGS (9)
  1. PRIVIGEN [Suspect]
     Active Substance: HUMAN IMMUNOGLOBULIN G
     Indication: CHRONIC INFLAMMATORY DEMYELINATING POLYRADICULONEUROPATHY
     Dosage: AS DIRECTED
     Route: 042
  2. PAROXETINE. [Concomitant]
     Active Substance: PAROXETINE
  3. SODIUM CHLORIDE. [Concomitant]
     Active Substance: SODIUM CHLORIDE
  4. EPIPEN [Concomitant]
     Active Substance: EPINEPHRINE
  5. ACETAMINOPHEN. [Concomitant]
     Active Substance: ACETAMINOPHEN
  6. DEXTROSE. [Concomitant]
     Active Substance: DEXTROSE
  7. MELOXICAM. [Concomitant]
     Active Substance: MELOXICAM
  8. ASPIRIN. [Concomitant]
     Active Substance: ASPIRIN
  9. DIPHENHYDRAMINE. [Concomitant]
     Active Substance: DIPHENHYDRAMINE

REACTIONS (1)
  - Blood pressure increased [Unknown]
